FAERS Safety Report 8600700-3 (Version None)
Quarter: 2012Q3

REPORT INFORMATION
  Report Type: 
  Country: None (occurrence: None)
  Receive Date: 20120817
  Receipt Date: 20120813
  Transmission Date: 20120928
  Serious: Yes (Hospitalization)
  Sender: FDA-Public Use
  Company Number: US-AMGEN-USASP2012051374

PATIENT
  Age: 79 Year
  Sex: Female

DRUGS (1)
  1. ENBREL [Suspect]
     Indication: RHEUMATOID ARTHRITIS
     Dosage: 50 MG, QWK
     Dates: start: 20020401

REACTIONS (8)
  - HAEMATOMA [None]
  - ANIMAL SCRATCH [None]
  - FALL [None]
  - INJECTION SITE PAIN [None]
  - MUSCULOSKELETAL DISORDER [None]
  - FEMUR FRACTURE [None]
  - NERVE INJURY [None]
  - WOUND HAEMORRHAGE [None]
